FAERS Safety Report 19990559 (Version 1)
Quarter: 2021Q4

REPORT INFORMATION
  Report Type: Spontaneous
  Country: US (occurrence: US)
  Receive Date: 20211023
  Receipt Date: 20211023
  Transmission Date: 20220304
  Serious: Yes (Other)
  Sender: FDA-Public Use
  Company Number: None

PATIENT
  Age: 65 Year
  Sex: Female
  Weight: 87.75 kg

DRUGS (1)
  1. ALBUTEROL [Suspect]
     Active Substance: ALBUTEROL
     Indication: Bronchitis
     Dosage: ?          QUANTITY:2 PUFF(S);
     Route: 048
     Dates: start: 20210523, end: 20210605

REACTIONS (16)
  - Fear [None]
  - Nervousness [None]
  - Insomnia [None]
  - Suicidal ideation [None]
  - Decreased appetite [None]
  - Palpitations [None]
  - Restlessness [None]
  - Agitation [None]
  - Sensory disturbance [None]
  - Tremor [None]
  - Parosmia [None]
  - Temperature intolerance [None]
  - Paraesthesia [None]
  - Decreased interest [None]
  - Anxiety [None]
  - Anhedonia [None]

NARRATIVE: CASE EVENT DATE: 20210603
